FAERS Safety Report 23594327 (Version 2)
Quarter: 2024Q1

REPORT INFORMATION
  Report Type: Spontaneous
  Country: FR (occurrence: FR)
  Receive Date: 20240305
  Receipt Date: 20240321
  Transmission Date: 20240409
  Serious: Yes (Hospitalization, Other)
  Sender: FDA-Public Use
  Company Number: FR-AFSSAPS-AN2024000259

PATIENT
  Age: 31 Year
  Sex: Male
  Weight: 88 kg

DRUGS (3)
  1. ACETAMINOPHEN [Suspect]
     Active Substance: ACETAMINOPHEN
     Indication: Pain
     Dosage: 1 GRAM, AS NECESSARY
     Route: 048
     Dates: start: 20240213
  2. ASPIRIN DL-LYSINE [Suspect]
     Active Substance: ASPIRIN DL-LYSINE
     Indication: Pericarditis
     Dosage: 1 GRAM, IN TOTAL
     Route: 048
     Dates: start: 20240213, end: 20240213
  3. IOBITRIDOL [Suspect]
     Active Substance: IOBITRIDOL
     Indication: Pericarditis
     Dosage: 1 DOSAGE FORM, 1 TOTAL
     Route: 042
     Dates: start: 20240213

REACTIONS (2)
  - Angioedema [Not Recovered/Not Resolved]
  - Pruritus [Not Recovered/Not Resolved]

NARRATIVE: CASE EVENT DATE: 20240213
